FAERS Safety Report 10426400 (Version 1)
Quarter: 2014Q3

REPORT INFORMATION
  Report Type: Spontaneous
  Country: US (occurrence: None)
  Receive Date: 20140902
  Receipt Date: 20140902
  Transmission Date: 20150326
  Serious: Yes (Disabling)
  Sender: FDA-Public Use
  Company Number: None

PATIENT
  Age: 20 Year
  Sex: Female
  Weight: 113.4 kg

DRUGS (1)
  1. NEURONTIN [Suspect]
     Active Substance: GABAPENTIN
     Indication: MIGRAINE
     Dosage: 5 PILLS THREE TIMES DAILY TAKEN BY MOUTH
     Route: 048

REACTIONS (11)
  - Depression [None]
  - Panic attack [None]
  - Bedridden [None]
  - Vomiting [None]
  - Migraine [None]
  - Neuralgia [None]
  - Dizziness [None]
  - Somnolence [None]
  - Anxiety [None]
  - Balance disorder [None]
  - Nausea [None]
